FAERS Safety Report 12502317 (Version 1)
Quarter: 2016Q2

REPORT INFORMATION
  Report Type: Spontaneous
  Country: None (occurrence: JP)
  Receive Date: 20160627
  Receipt Date: 20160627
  Transmission Date: 20160815
  Serious: Yes (Hospitalization)
  Sender: FDA-Public Use
  Company Number: JP-ALLERGAN-1661272US

PATIENT
  Age: 8 Decade
  Sex: Male

DRUGS (2)
  1. URIEF [Suspect]
     Active Substance: SILODOSIN
     Indication: BLADDER OUTLET OBSTRUCTION
     Dosage: 8 MG, QD
     Route: 048
  2. URIEF [Suspect]
     Active Substance: SILODOSIN
     Indication: DYSURIA

REACTIONS (1)
  - Blood pressure decreased [Unknown]
